FAERS Safety Report 15034846 (Version 4)
Quarter: 2019Q3

REPORT INFORMATION
  Report Type: Spontaneous
  Country: US (occurrence: US)
  Receive Date: 20180620
  Receipt Date: 20190719
  Transmission Date: 20191004
  Serious: Yes (Hospitalization)
  Sender: FDA-Public Use
  Company Number: US-B.I. PHARMACEUTICALS,INC./RIDGEFIELD-2018-BI-031900

PATIENT
  Age: 71 Year
  Sex: Male
  Weight: 128.82 kg

DRUGS (19)
  1. ASPIRIN. [Concomitant]
     Active Substance: ASPIRIN
     Indication: PRODUCT USED FOR UNKNOWN INDICATION
     Dosage: FORM: DELAYED RELEASE TABLET
     Route: 048
  2. GLIPIZIDE XL [Concomitant]
     Active Substance: GLIPIZIDE
     Indication: DIABETIC NEPHROPATHY
     Dosage: FORM: TABLET, EXTENDED RELEASE
     Route: 048
  3. GLYBURIDE. [Concomitant]
     Active Substance: GLYBURIDE
     Indication: DIABETES MELLITUS
     Route: 065
  4. CLOBETASOL [Concomitant]
     Active Substance: CLOBETASOL
     Indication: PRODUCT USED FOR UNKNOWN INDICATION
     Route: 065
  5. FUROSEMIDE. [Concomitant]
     Active Substance: FUROSEMIDE
     Indication: PRODUCT USED FOR UNKNOWN INDICATION
     Route: 065
  6. ERGOCALCIFEROL. [Concomitant]
     Active Substance: ERGOCALCIFEROL
     Indication: PRODUCT USED FOR UNKNOWN INDICATION
     Dosage: FORM STRENGTH: 50,000 (1.25 MG)
     Route: 048
  7. VICTOZA [Concomitant]
     Active Substance: LIRAGLUTIDE
     Indication: DIABETIC NEPHROPATHY
     Route: 058
  8. ALLOPURINOL. [Concomitant]
     Active Substance: ALLOPURINOL
     Indication: GOUT
     Route: 048
  9. LORATADINE. [Concomitant]
     Active Substance: LORATADINE
     Indication: PRODUCT USED FOR UNKNOWN INDICATION
     Route: 048
  10. CLOTRIMAZOLE. [Concomitant]
     Active Substance: CLOTRIMAZOLE
     Indication: PRODUCT USED FOR UNKNOWN INDICATION
     Dosage: 1% . APPLY TO AFFECTED AREA 2 TIMES  A DAY FOR 30 DAYS.
     Route: 061
  11. PRADAXA [Suspect]
     Active Substance: DABIGATRAN ETEXILATE MESYLATE
     Indication: ATRIAL FIBRILLATION
     Route: 048
     Dates: start: 20110603, end: 20150714
  12. ASPIRIN. [Concomitant]
     Active Substance: ASPIRIN
     Route: 065
  13. AMLODIPINE [Concomitant]
     Active Substance: AMLODIPINE BESYLATE
     Indication: PRODUCT USED FOR UNKNOWN INDICATION
     Route: 065
  14. SIMVASTATIN. [Concomitant]
     Active Substance: SIMVASTATIN
     Indication: PRODUCT USED FOR UNKNOWN INDICATION
     Route: 048
  15. METFORMIN [Concomitant]
     Active Substance: METFORMIN HYDROCHLORIDE
     Indication: DIABETIC NEPHROPATHY
     Route: 048
  16. LISINOPRIL. [Concomitant]
     Active Substance: LISINOPRIL
     Indication: PRODUCT USED FOR UNKNOWN INDICATION
     Dosage: 30 DAYS
     Route: 048
  17. ALCOHOL WIPE [Concomitant]
     Active Substance: ISOPROPYL ALCOHOL
     Indication: PRODUCT USED FOR UNKNOWN INDICATION
     Route: 065
  18. CARVEDILOL. [Concomitant]
     Active Substance: CARVEDILOL
     Indication: HYPERTENSION
     Route: 048
  19. DORZOLAMIDE AND TIMOLOL [Concomitant]
     Active Substance: DORZOLAMIDE\TIMOLOL
     Indication: PRODUCT USED FOR UNKNOWN INDICATION
     Route: 065

REACTIONS (1)
  - Subdural haematoma [Recovering/Resolving]

NARRATIVE: CASE EVENT DATE: 20150714
